FAERS Safety Report 20488972 (Version 1)
Quarter: 2022Q1

REPORT INFORMATION
  Report Type: Spontaneous
  Country: DK (occurrence: DK)
  Receive Date: 20220218
  Receipt Date: 20220218
  Transmission Date: 20220424
  Serious: Yes (Other)
  Sender: FDA-Public Use
  Company Number: None

PATIENT
  Age: 0 Year
  Sex: Female

DRUGS (1)
  1. METRONIDAZOLE [Suspect]
     Active Substance: METRONIDAZOLE
     Indication: Infection
     Dosage: METRONIDAZOLE ^ACTAVIS^,UNIT DOSE:1500MG
     Route: 063
     Dates: start: 20200708, end: 202007

REACTIONS (5)
  - Abdominal pain [Recovered/Resolved]
  - Exposure via breast milk [Recovered/Resolved]
  - Diarrhoea neonatal [Recovered/Resolved]
  - Rash neonatal [Recovered/Resolved]
  - Fever neonatal [Recovered/Resolved]

NARRATIVE: CASE EVENT DATE: 20200701
